FAERS Safety Report 7199096-6 (Version None)
Quarter: 2010Q4

REPORT INFORMATION
  Report Type: 
  Country: None (occurrence: None)
  Receive Date: 20101126
  Receipt Date: 20100716
  Transmission Date: 20110411
  Serious: Yes (Other)
  Sender: FDA-Public Use
  Company Number: CIP10001664

PATIENT
  Age: 82 Year
  Sex: Female

DRUGS (11)
  1. ACTONEL [Suspect]
     Dosage: 35 MG, ONCE A WEEK, ORAL
     Route: 048
     Dates: start: 20000101
  2. NORVASC [Concomitant]
  3. LOPRESSOR [Concomitant]
  4. LANOXIN [Concomitant]
  5. HYDROCHLOROTHIAZIDE [Concomitant]
  6. CENTRUM SILVER /01292501/ (ASCORBIC ACID, CALCIUM, MINERALS NOS, RETIN [Concomitant]
  7. CALTRATE +D /01204201/ (CALCIUM CARBONATE, ERGOCALCIFEROL) [Concomitant]
  8. PRESERVISION LUTEIN EYE VITA.+MIN.SUP.SOFTG. (ASCORBIC ACID, CUPRIC OX [Concomitant]
  9. ZOCOR [Concomitant]
  10. BENAZEPRIL HYDROCHLORIDE [Concomitant]
  11. COUMADIN [Concomitant]

REACTIONS (6)
  - ABASIA [None]
  - ARTHRALGIA [None]
  - BONE PAIN [None]
  - GROIN PAIN [None]
  - NAUSEA [None]
  - OEDEMA PERIPHERAL [None]
